FAERS Safety Report 7294469-5 (Version None)
Quarter: 2011Q1

REPORT INFORMATION
  Report Type: 
  Country: None (occurrence: None)
  Receive Date: 20110216
  Receipt Date: 20110208
  Transmission Date: 20110831
  Serious: Yes (Life-Threatening, Hospitalization)
  Sender: FDA-Public Use
  Company Number: US-BIOGENIDEC-2011BI004605

PATIENT
  Age: 32 Year
  Sex: Female

DRUGS (11)
  1. LAMICTAL [Concomitant]
     Indication: PAIN
     Route: 048
  2. RITALIN [Concomitant]
     Indication: FATIGUE
     Route: 048
  3. NUVIGIL [Concomitant]
     Indication: FATIGUE
     Route: 048
  4. ZETIA [Concomitant]
  5. ZOFRAN [Concomitant]
     Indication: NAUSEA
  6. WELLBUTRIN XL [Concomitant]
     Indication: DEPRESSION
  7. SYNTHROID [Concomitant]
     Indication: HYPOTHYROIDISM
  8. PRISTIQ [Concomitant]
     Indication: DEPRESSION
  9. ABILIFY [Concomitant]
  10. TYSABRI [Suspect]
     Indication: MULTIPLE SCLEROSIS
     Route: 042
     Dates: start: 20090702
  11. SEROQUEL [Concomitant]
     Indication: INSOMNIA
     Route: 048

REACTIONS (5)
  - ORTHOSTATIC HYPOTENSION [None]
  - BILIARY DYSKINESIA [None]
  - TROPONIN INCREASED [None]
  - RESPIRATORY FAILURE [None]
  - PULMONARY OEDEMA [None]
